FAERS Safety Report 4524520-4 (Version None)
Quarter: 2005Q1

REPORT INFORMATION
  Report Type: 
  Country: None (occurrence: None)
  Receive Date: 20041117
  Receipt Date: 20040416
  Transmission Date: 20050727
  Serious: Yes (Hospitalization)
  Sender: FDA-Public Use
  Company Number: US-JNJFOC-20040103767

PATIENT
  Sex: Male

DRUGS (21)
  1. LEVAQUIN [Suspect]
     Indication: SKIN ULCER
     Dosage: 500 MG, 1 IN 1 DAY
     Dates: start: 20031216, end: 20031226
  2. TYLENOL (ACETAMINOPHEN/CODEINE) [Concomitant]
  3. NEURONTIN [Concomitant]
  4. PREVACID [Concomitant]
  5. FERROUS SULFATE TAB [Concomitant]
  6. KLOR-CON [Concomitant]
  7. REGLAN [Concomitant]
  8. VITAMIN C (ASCORBIC ACID) [Concomitant]
  9. HEPARIN [Concomitant]
  10. LANTUS [Concomitant]
  11. UNASYN (UNACID) [Concomitant]
  12. DIOVAN HCT (CO-DIOVAN) [Concomitant]
  13. PRINIVIL [Concomitant]
  14. LORTAB [Concomitant]
  15. IMMODIUM (LOPERAMIDE HYDROCHLORIDE) [Concomitant]
  16. ATIVAN [Concomitant]
  17. NITROBID PASTE (GLYCERYL TRINITRATE) [Concomitant]
  18. FLAGYL [Concomitant]
  19. PROTONIX [Concomitant]
  20. DIOVAN [Concomitant]
  21. NORVASC [Concomitant]

REACTIONS (1)
  - RENAL FAILURE [None]
